FAERS Safety Report 6146102-3 (Version None)
Quarter: 2009Q2

REPORT INFORMATION
  Report Type: 
  Country: None (occurrence: None)
  Receive Date: 20090407
  Receipt Date: 20090327
  Transmission Date: 20091009
  Serious: Yes (Other)
  Sender: FDA-Public Use
  Company Number: US-BAYER-200916762NA

PATIENT
  Age: 70 Year
  Sex: Male

DRUGS (2)
  1. AVELOX [Suspect]
     Indication: INFECTION
  2. BACTRIM [Concomitant]

REACTIONS (1)
  - TENDON RUPTURE [None]
